FAERS Safety Report 24740303 (Version 1)
Quarter: 2024Q4

REPORT INFORMATION
  Report Type: Spontaneous
  Country: US (occurrence: US)
  Receive Date: 20241216
  Receipt Date: 20241216
  Transmission Date: 20250115
  Serious: Yes (Life-Threatening, Other)
  Sender: ASTELLAS
  Company Number: US-ASTELLAS-2024-AER-025538

PATIENT
  Age: 6 Decade
  Sex: Female

DRUGS (5)
  1. ISAVUCONAZOLE [Interacting]
     Active Substance: ISAVUCONAZOLE
     Indication: Prophylaxis
     Dosage: INTERRUPTED FOR ABOUT 3 WEEKS
     Route: 065
  2. PACRITINIB [Interacting]
     Active Substance: PACRITINIB
     Indication: Acute myeloid leukaemia
     Dosage: 200 MG BID
     Route: 065
  3. PACRITINIB [Interacting]
     Active Substance: PACRITINIB
     Indication: Myelofibrosis
     Dosage: REDUCED TO 100 MG BID?INTERRUPTED FOR ABOUT 3 WEEKS
     Route: 065
  4. PACRITINIB [Interacting]
     Active Substance: PACRITINIB
     Dosage: PACRITINIB 100 MG BID WITH CYCLE 2 OF DECITABINE/VENETOCLAX AND DISCONTINUED ON DAY 39
     Route: 065
  5. decitabine/venetoclax [Concomitant]
     Indication: Essential thrombocythaemia
     Route: 065

REACTIONS (6)
  - Thrombocytopenia [Unknown]
  - COVID-19 [Unknown]
  - Alanine aminotransferase increased [Unknown]
  - Aspartate aminotransferase increased [Unknown]
  - Drug interaction [Unknown]
  - Off label use [Unknown]
